FAERS Safety Report 7214685-8 (Version None)
Quarter: 2011Q1

REPORT INFORMATION
  Report Type: 
  Country: None (occurrence: None)
  Receive Date: 20110107
  Receipt Date: 20100414
  Transmission Date: 20110831
  Serious: No
  Sender: FDA-Public Use
  Company Number: A0798261A

PATIENT
  Age: 65 Year
  Sex: Female

DRUGS (7)
  1. SYNTHROID [Concomitant]
  2. THYROID TAB [Concomitant]
  3. NIASPAN [Concomitant]
  4. CALCIUM [Concomitant]
  5. MULTI-VITAMIN [Concomitant]
  6. VITAMIN D [Concomitant]
     Dates: start: 20090522
  7. LOVAZA [Suspect]
     Dosage: 1CAP PER DAY
     Route: 048
     Dates: start: 20090527

REACTIONS (4)
  - BLOOD CHOLESTEROL INCREASED [None]
  - THERAPEUTIC RESPONSE UNEXPECTED [None]
  - GASTROOESOPHAGEAL REFLUX DISEASE [None]
  - DYSPHONIA [None]
